FAERS Safety Report 7483815-5 (Version None)
Quarter: 2011Q2

REPORT INFORMATION
  Report Type: 
  Country: None (occurrence: None)
  Receive Date: 20110517
  Receipt Date: 20110506
  Transmission Date: 20111010
  Serious: Yes (Death)
  Sender: FDA-Public Use
  Company Number: FR-SANOFI-AVENTIS-2011SA029191

PATIENT
  Age: 63 Year
  Sex: Male

DRUGS (3)
  1. CABAZITAXEL [Suspect]
     Route: 042
     Dates: start: 20110308, end: 20110308
  2. PREDNISONE [Concomitant]
  3. CABAZITAXEL [Suspect]
     Route: 042
     Dates: start: 20110201, end: 20110201

REACTIONS (3)
  - ASTHENIA [None]
  - DEATH [None]
  - JAUNDICE [None]
